FAERS Safety Report 6727901-3 (Version None)
Quarter: 2010Q2

REPORT INFORMATION
  Report Type: 
  Country: None (occurrence: None)
  Receive Date: 20100517
  Receipt Date: 20100510
  Transmission Date: 20101027
  Serious: Yes (Hospitalization)
  Sender: FDA-Public Use
  Company Number: JP-EISAI INC.-E3810-03610-SPO-JP

PATIENT
  Age: 52 Year
  Sex: Female
  Weight: 58 kg

DRUGS (2)
  1. PARIET (RABEPRAZOLE) [Suspect]
     Indication: REFLUX OESOPHAGITIS
     Route: 048
     Dates: start: 20100101, end: 20100123
  2. CALONAL [Suspect]
     Indication: PYREXIA
     Dosage: 2 TABLETS
     Route: 048
     Dates: start: 20100122, end: 20100122

REACTIONS (1)
  - EPIDERMAL NECROSIS [None]
